FAERS Safety Report 24224582 (Version 3)
Quarter: 2024Q3

REPORT INFORMATION
  Report Type: Report from Study
  Country: NL (occurrence: NL)
  Receive Date: 20240819
  Receipt Date: 20240912
  Transmission Date: 20241016
  Serious: Yes (Hospitalization)
  Sender: IPSEN
  Company Number: NL-IPSEN Group, Research and Development-2024-16016

PATIENT
  Age: 53 Year
  Sex: Female

DRUGS (2)
  1. LANREOTIDE ACETATE [Suspect]
     Active Substance: LANREOTIDE ACETATE
     Indication: Neuroendocrine tumour
     Dosage: ZINR: 14845016
     Route: 058
     Dates: start: 20200604
  2. LANREOTIDE ACETATE [Suspect]
     Active Substance: LANREOTIDE ACETATE
     Dosage: ZINR: 14845016
     Route: 058
     Dates: start: 20240715

REACTIONS (2)
  - Constipation [Unknown]
  - Product dose omission issue [Unknown]
